FAERS Safety Report 19188783 (Version 1)
Quarter: 2021Q2

REPORT INFORMATION
  Report Type: Spontaneous
  Country: US (occurrence: US)
  Receive Date: 20210427
  Receipt Date: 20210427
  Transmission Date: 20210717
  Serious: Yes (Hospitalization)
  Sender: FDA-Public Use
  Company Number: None

PATIENT
  Age: 52 Year
  Sex: Male
  Weight: 74.6 kg

DRUGS (17)
  1. LABETALOL [Concomitant]
     Active Substance: LABETALOL\LABETALOL HYDROCHLORIDE
     Dates: start: 20210111
  2. MAGNESIUM OXIDE. [Concomitant]
     Active Substance: MAGNESIUM OXIDE
     Dates: start: 20210315
  3. BISACODYL. [Concomitant]
     Active Substance: BISACODYL
     Dates: start: 20210401
  4. LACTULOSE. [Concomitant]
     Active Substance: LACTULOSE
     Dates: start: 20210401
  5. ATORVASTATIN [Concomitant]
     Active Substance: ATORVASTATIN
     Dates: start: 20200229
  6. LIDOCAINE?PRILOCAINE [Concomitant]
     Active Substance: LIDOCAINE\PRILOCAINE
     Dates: start: 20200803
  7. SPIRONOLACTONE. [Concomitant]
     Active Substance: SPIRONOLACTONE
     Dates: start: 20210411
  8. TORESMIDE [Concomitant]
     Dates: start: 20210301
  9. ACETAMINOPHEN. [Concomitant]
     Active Substance: ACETAMINOPHEN
     Dates: start: 20200324
  10. AMLODIPINE [Concomitant]
     Active Substance: AMLODIPINE BESYLATE
     Dates: start: 20200229
  11. DOCUSSATE SODIUM [Concomitant]
     Dates: start: 20210329
  12. MORPHINE [Concomitant]
     Active Substance: MORPHINE
     Dates: start: 20210317
  13. ONDANSETRON [Concomitant]
     Active Substance: ONDANSETRON
     Dates: start: 20210301
  14. ABEMACICLIB [Suspect]
     Active Substance: ABEMACICLIB
     Indication: ADENOCARCINOMA
  15. SENNA [Concomitant]
     Active Substance: SENNA LEAF\SENNOSIDES\SENNOSIDES A AND B
     Dates: start: 20210401
  16. LISINOPRIL. [Concomitant]
     Active Substance: LISINOPRIL
     Dates: start: 20200229
  17. OMEPRAZOLE. [Concomitant]
     Active Substance: OMEPRAZOLE
     Dates: start: 20210302

REACTIONS (2)
  - Hyponatraemia [None]
  - Scrotal oedema [None]

NARRATIVE: CASE EVENT DATE: 20210426
